FAERS Safety Report 9176773 (Version 2)
Quarter: 2013Q3

REPORT INFORMATION
  Report Type: Spontaneous
  Country: US (occurrence: US)
  Receive Date: 20130321
  Receipt Date: 20130829
  Transmission Date: 20140515
  Serious: Yes (Other)
  Sender: FDA-Public Use
  Company Number: US-PFIZER INC-2013089057

PATIENT
  Age: 85 Year
  Sex: Female
  Weight: 47.62 kg

DRUGS (5)
  1. REVATIO [Suspect]
     Indication: PULMONARY HYPERTENSION
     Dosage: UNK, 3X/DAY
  2. REVATIO [Suspect]
     Dosage: UNK, 2X/DAY
  3. REVATIO [Suspect]
     Dosage: UNK
  4. CALCIUM [Concomitant]
     Dosage: UNK
  5. PANTOPRAZOLE [Concomitant]
     Dosage: UNK

REACTIONS (2)
  - Hip fracture [Unknown]
  - Hair growth abnormal [Not Recovered/Not Resolved]
